FAERS Safety Report 8796247 (Version 1)
Quarter: 2012Q4

REPORT INFORMATION
  Report Type: 
  Country: US (occurrence: US)
  Receive Date: 20120920
  Receipt Date: 20120920
  Transmission Date: 20130627
  Serious: Yes (Other)
  Sender: FDA-Public Use
  Company Number: US-BAYER-2012-096937

PATIENT
  Age: 35 Year
  Sex: Female
  Weight: 81.63 kg

DRUGS (10)
  1. YASMIN [Suspect]
  2. YAZ [Suspect]
  3. LISINOPRIL [Concomitant]
     Dosage: 20 mg, UNK
     Dates: start: 20070105, end: 20070301
  4. DEPO-MEDROL [Concomitant]
     Indication: SINUSITIS
     Dosage: 80 mg, UNK
     Route: 030
     Dates: start: 20070503
  5. DEPO-MEDROL [Concomitant]
     Indication: PHARYNGITIS
  6. AMOXICILLIN [Concomitant]
     Dosage: 875 mg, BID,for 10 days
     Dates: start: 20070503
  7. OXYCODONE/APAP [Concomitant]
     Dosage: 5/500 mg
     Dates: start: 20070626
  8. PROMETHEGAN [Concomitant]
     Dosage: 25 mg, UNK
  9. IBUPROFEN [Concomitant]
     Dosage: 800 mg, UNK
     Dates: start: 20070621
  10. MULTIVITAMIN [Concomitant]

REACTIONS (1)
  - Deep vein thrombosis [None]
